FAERS Safety Report 19467713 (Version 1)
Quarter: 2021Q2

REPORT INFORMATION
  Report Type: Spontaneous
  Country: US (occurrence: US)
  Receive Date: 20210628
  Receipt Date: 20210628
  Transmission Date: 20210717
  Serious: Yes (Hospitalization)
  Sender: FDA-Public Use
  Company Number: None

PATIENT
  Age: 74 Year
  Sex: Male
  Weight: 71.8 kg

DRUGS (1)
  1. DOCETAXEL 75MG/M2 [Suspect]
     Active Substance: DOCETAXEL
     Indication: NON-SMALL CELL LUNG CANCER
     Dosage: ?          OTHER FREQUENCY:Q 21 DAY;OTHER ROUTE:IV?
     Dates: start: 20210203, end: 20210609

REACTIONS (2)
  - Hypoxia [None]
  - Cardiac failure congestive [None]

NARRATIVE: CASE EVENT DATE: 20210626
